FAERS Safety Report 8415062-4 (Version None)
Quarter: 2012Q2

REPORT INFORMATION
  Report Type: 
  Country: None (occurrence: None)
  Receive Date: 20120530
  Receipt Date: 20120523
  Transmission Date: 20120825
  Serious: No
  Sender: FDA-Public Use
  Company Number: A0978974A

PATIENT
  Age: 27 Year
  Sex: Male

DRUGS (4)
  1. NEUROLEPTIC [Concomitant]
  2. PAROXETINE HYDROCHLORIDE [Suspect]
     Indication: PRODUCT USED FOR UNKNOWN INDICATION
     Dosage: 30 MG / ORAL
     Route: 048
  3. RISPERIDONE [Concomitant]
  4. ZOLPIDEM [Suspect]
     Indication: INSOMNIA
     Dosage: 10 MG/ORAL
     Route: 048

REACTIONS (9)
  - MANIA [None]
  - FEELING DRUNK [None]
  - INSOMNIA [None]
  - DRUG INTERACTION [None]
  - DRUG LEVEL INCREASED [None]
  - VISION BLURRED [None]
  - GRANDIOSITY [None]
  - MOTOR DYSFUNCTION [None]
  - TACHYPHRENIA [None]
